FAERS Safety Report 17138675 (Version 1)
Quarter: 2019Q4

REPORT INFORMATION
  Report Type: Spontaneous
  Country: US (occurrence: US)
  Receive Date: 20191211
  Receipt Date: 20191211
  Transmission Date: 20200122
  Serious: No
  Sender: FDA-Public Use
  Company Number: US-UCBSA-2016023873

PATIENT
  Age: 67 Year
  Sex: Female

DRUGS (2)
  1. CIMZIA [Suspect]
     Active Substance: CERTOLIZUMAB PEGOL
     Indication: OFF LABEL USE
  2. CIMZIA [Suspect]
     Active Substance: CERTOLIZUMAB PEGOL
     Indication: MULTIPLE SCLEROSIS
     Dosage: 400 MG, MONTHLY (QM)
     Route: 058
     Dates: start: 20120802

REACTIONS (4)
  - Arthralgia [Not Recovered/Not Resolved]
  - Off label use [Unknown]
  - Joint swelling [Unknown]
  - Synovial cyst [Unknown]

NARRATIVE: CASE EVENT DATE: 20120802
